FAERS Safety Report 12503858 (Version 2)
Quarter: 2016Q3

REPORT INFORMATION
  Report Type: Spontaneous
  Country: BR (occurrence: BR)
  Receive Date: 20160628
  Receipt Date: 20160705
  Transmission Date: 20161109
  Serious: Yes (Life-Threatening, Hospitalization, Other)
  Sender: FDA-Public Use
  Company Number: BR-PFIZER INC-2016307425

PATIENT
  Age: 23 Year
  Sex: Male
  Weight: 63 kg

DRUGS (6)
  1. ZITHROMAX [Suspect]
     Active Substance: AZITHROMYCIN DIHYDRATE
     Indication: INFECTION
     Dosage: 500MG, 1 AMPOULE IN AFTERNOON
     Route: 042
     Dates: start: 20160601, end: 20160609
  2. NAUSEDRON [Suspect]
     Active Substance: ONDANSETRON HYDROCHLORIDE
     Indication: VOMITING
  3. AMIKACIN [Concomitant]
     Active Substance: AMIKACIN
     Dosage: UNK
  4. NAUSEDRON [Suspect]
     Active Substance: ONDANSETRON HYDROCHLORIDE
     Indication: NAUSEA
     Dosage: 4MG,1 AMPOULE /6HRS
     Route: 042
     Dates: start: 20160530, end: 20160609
  5. CEFTRIAXONE SODIUM. [Concomitant]
     Active Substance: CEFTRIAXONE SODIUM
     Dosage: UNK
  6. BACTRIM [Concomitant]
     Active Substance: SULFAMETHOXAZOLE\TRIMETHOPRIM
     Dosage: UNK

REACTIONS (4)
  - Cardio-respiratory arrest [Recovered/Resolved]
  - Ventricular fibrillation [Unknown]
  - Electrocardiogram QT prolonged [Unknown]
  - Systolic dysfunction [Unknown]

NARRATIVE: CASE EVENT DATE: 2016
